FAERS Safety Report 7369699-4 (Version None)
Quarter: 2011Q1

REPORT INFORMATION
  Report Type: 
  Country: None (occurrence: None)
  Receive Date: 20110323
  Receipt Date: 20100806
  Transmission Date: 20110831
  Serious: Yes (Other)
  Sender: FDA-Public Use
  Company Number: US-BAYER-201016015NA

PATIENT
  Sex: Female
  Weight: 65.76 kg

DRUGS (13)
  1. MUPIROCIN [Concomitant]
  2. PREDNISONE [Concomitant]
     Dosage: 20 MG, UNK
  3. AMOKSIKLAV [Concomitant]
  4. BUPROPION [Concomitant]
     Dosage: 15 MG, BID
  5. LEVAQUIN [Concomitant]
  6. OXYCODONE [Concomitant]
  7. STEROID ANTIBACTERIALS [Concomitant]
     Indication: PHARYNGITIS STREPTOCOCCAL
     Dosage: UNK
     Dates: start: 20091118
  8. TAMIFLU [Concomitant]
     Dosage: UNK
  9. YAZ [Suspect]
     Indication: ACNE
     Dosage: UNK UNK, UNK
     Route: 048
     Dates: start: 20071201, end: 20080101
  10. AZITHROMYCIN [Concomitant]
  11. YAZ [Suspect]
     Dosage: UNK
     Dates: start: 20080601
  12. ANTIBIOTICS [Concomitant]
     Indication: PHARYNGITIS STREPTOCOCCAL
     Dosage: UNK
     Dates: start: 20091118
  13. YASMIN [Suspect]
     Indication: PRODUCT USED FOR UNKNOWN INDICATION

REACTIONS (4)
  - THROMBOSIS [None]
  - ARRHYTHMIA [None]
  - CARDIAC FAILURE [None]
  - PREMENSTRUAL SYNDROME [None]
